FAERS Safety Report 10585174 (Version 1)
Quarter: 2014Q4

REPORT INFORMATION
  Report Type: Spontaneous
  Country: US (occurrence: None)
  Receive Date: 20141113
  Receipt Date: 20141113
  Transmission Date: 20150529
  Serious: Yes (Hospitalization)
  Sender: FDA-Public Use
  Company Number: BD-2014-0145

PATIENT
  Age: 49 Year
  Sex: Female

DRUGS (2)
  1. MORPHINE SULFATE. [Suspect]
     Active Substance: MORPHINE SULFATE
     Indication: GASTRIC HYPOMOTILITY
  2. CODEINE [Suspect]
     Active Substance: CODEINE
     Indication: GASTRIC HYPOMOTILITY

REACTIONS (5)
  - Toxicity to various agents [None]
  - Hypertension [None]
  - Gastrointestinal obstruction [None]
  - Tachycardia [None]
  - Bradypnoea [None]
